FAERS Safety Report 24068779 (Version 1)
Quarter: 2024Q3

REPORT INFORMATION
  Report Type: Spontaneous
  Country: JP (occurrence: JP)
  Receive Date: 20240710
  Receipt Date: 20240710
  Transmission Date: 20241017
  Serious: No
  Sender: ROCHE
  Company Number: JP-CHUGAI-2024013813

PATIENT
  Age: 86 Year
  Sex: Female

DRUGS (1)
  1. ROZLYTREK [Suspect]
     Active Substance: ENTRECTINIB
     Indication: Neoplasm malignant
     Route: 065
     Dates: start: 20240418

REACTIONS (7)
  - Faeces soft [Unknown]
  - Faeces hard [Unknown]
  - Chest discomfort [Unknown]
  - Lip dry [Unknown]
  - Constipation [Unknown]
  - Malaise [Unknown]
  - Dizziness [Unknown]

NARRATIVE: CASE EVENT DATE: 20240418
